FAERS Safety Report 8967924 (Version 1)
Quarter: 2012Q4

REPORT INFORMATION
  Report Type: Report from Study
  Country: DE (occurrence: DE)
  Receive Date: 20121218
  Receipt Date: 20121218
  Transmission Date: 20130627
  Serious: Yes (Hospitalization)
  Sender: FDA-Public Use
  Company Number: DE-009507513-1212DEU004865

PATIENT
  Age: 54 Year
  Sex: Male
  Weight: 77 kg

DRUGS (3)
  1. RIBAVIRIN [Suspect]
     Indication: CHRONIC HEPATITIS C
     Dosage: 1200 mg, daily
     Route: 048
     Dates: start: 20111118, end: 20120223
  2. BOCEPREVIR [Suspect]
     Indication: CHRONIC HEPATITIS C
     Dosage: 2400 mg, daily
     Route: 048
     Dates: start: 20111118, end: 20120223
  3. PEGASYS [Suspect]
     Indication: CHRONIC HEPATITIS C
     Dosage: 180 Microgram, qw
     Route: 058
     Dates: start: 20111118, end: 20120223

REACTIONS (1)
  - Pancytopenia [Recovered/Resolved]
